FAERS Safety Report 19085581 (Version 6)
Quarter: 2025Q3

REPORT INFORMATION
  Report Type: Spontaneous
  Country: EU (occurrence: EU)
  Receive Date: 20210401
  Receipt Date: 20250726
  Transmission Date: 20251021
  Serious: Yes (Congenital Anomaly, Other)
  Sender: CELLTRION
  Company Number: EU-CELLTRION INC.-2021FI004194

PATIENT

DRUGS (9)
  1. INFLIXIMAB [Suspect]
     Active Substance: INFLIXIMAB
     Indication: Oligoarthritis
     Route: 064
     Dates: start: 201906, end: 20200403
  2. INFLIXIMAB [Suspect]
     Active Substance: INFLIXIMAB
     Route: 064
     Dates: start: 2020, end: 2020
  3. CIMZIA [Suspect]
     Active Substance: CERTOLIZUMAB PEGOL
     Indication: Product used for unknown indication
     Route: 064
     Dates: start: 20200605, end: 202008
  4. CIMZIA [Suspect]
     Active Substance: CERTOLIZUMAB PEGOL
     Route: 064
     Dates: start: 2020, end: 2020
  5. FOLIC ACID [Concomitant]
     Active Substance: FOLIC ACID
     Route: 064
  6. LEVOTHYROXINE [Concomitant]
     Active Substance: LEVOTHYROXINE
     Route: 064
  7. IMUREL [Concomitant]
     Route: 064
  8. PREDNISOLONE [Concomitant]
     Active Substance: PREDNISOLONE
     Route: 064
  9. HYDROXYCHLOROQUINE SULFATE [Concomitant]
     Active Substance: HYDROXYCHLOROQUINE SULFATE
     Route: 064

REACTIONS (19)
  - VACTERL syndrome [Recovered/Resolved with Sequelae]
  - Congenital jaw malformation [Recovered/Resolved with Sequelae]
  - Renal hypoplasia [Recovered/Resolved with Sequelae]
  - Ventricular septal defect [Recovered/Resolved with Sequelae]
  - Roberts syndrome [Recovered/Resolved with Sequelae]
  - CHARGE syndrome [Recovered/Resolved with Sequelae]
  - Pulmonary malformation [Recovered/Resolved with Sequelae]
  - Congenital ureteric anomaly [Recovered/Resolved with Sequelae]
  - Uterine hypoplasia [Recovered/Resolved with Sequelae]
  - Congenital musculoskeletal disorder [Recovered/Resolved with Sequelae]
  - Single umbilical artery [Recovered/Resolved with Sequelae]
  - Congenital cardiovascular anomaly [Recovered/Resolved with Sequelae]
  - Ear malformation [Recovered/Resolved with Sequelae]
  - Congenital intestinal malformation [Recovered/Resolved with Sequelae]
  - Anal atresia [Recovered/Resolved with Sequelae]
  - Thrombocytopenia-absent radius syndrome [Recovered/Resolved with Sequelae]
  - Abortion induced [Recovered/Resolved with Sequelae]
  - Foetal exposure during pregnancy [Recovered/Resolved with Sequelae]
  - Maternal exposure during pregnancy [Unknown]

NARRATIVE: CASE EVENT DATE: 20200101
